FAERS Safety Report 9695229 (Version 1)
Quarter: 2013Q4

REPORT INFORMATION
  Report Type: Spontaneous
  Country: US (occurrence: US)
  Receive Date: 20131119
  Receipt Date: 20131119
  Transmission Date: 20140711
  Serious: Yes (Hospitalization)
  Sender: FDA-Public Use
  Company Number: US-BAYER-2013-139459

PATIENT
  Age: 35 Year
  Sex: Female
  Weight: 65 kg

DRUGS (6)
  1. YASMIN [Suspect]
  2. GIANVI [Suspect]
  3. OCELLA [Suspect]
  4. YAZ [Suspect]
  5. LEVOFLOXACIN [Concomitant]
     Dosage: 750 MG, QD
     Route: 048
  6. NASONEX [Concomitant]
     Dosage: 50 MCG/ACTUATION, 1 SPRAY EACH NOSTRIL ONCE DAILY AS NEEDED

REACTIONS (2)
  - Pulmonary embolism [None]
  - Deep vein thrombosis [None]
